FAERS Safety Report 14339084 (Version 1)
Quarter: 2017Q4

REPORT INFORMATION
  Report Type: Report from Study
  Country: US (occurrence: US)
  Receive Date: 20171230
  Receipt Date: 20171230
  Transmission Date: 20180321
  Serious: Yes (Disabling)
  Sender: FDA-Public Use
  Company Number: US-ACTELION-A-US2017-149996

PATIENT
  Age: 59 Year
  Sex: Female
  Weight: 58.5 kg

DRUGS (10)
  1. ADCIRCA [Concomitant]
     Active Substance: TADALAFIL
  2. TYVASO [Concomitant]
     Active Substance: TREPROSTINIL
  3. UPTRAVI [Suspect]
     Active Substance: SELEXIPAG
     Indication: PULMONARY ARTERIAL HYPERTENSION
     Dosage: 400 MCG AM AND 600 MCG PM
     Route: 048
  4. UPTRAVI [Suspect]
     Active Substance: SELEXIPAG
     Dosage: 600 MCG AM, 800 MCG PM
     Route: 048
  5. WARFARIN [Concomitant]
     Active Substance: WARFARIN
  6. UPTRAVI [Suspect]
     Active Substance: SELEXIPAG
     Dosage: 600 MCG, BID
     Route: 048
  7. UPTRAVI [Suspect]
     Active Substance: SELEXIPAG
     Dosage: 400 MCG, BID
     Route: 048
  8. SILDENAFIL. [Concomitant]
     Active Substance: SILDENAFIL
  9. TRACLEER [Suspect]
     Active Substance: BOSENTAN
     Indication: PULMONARY ARTERIAL HYPERTENSION
     Dosage: 125 MG, BID
     Route: 048
  10. UPTRAVI [Suspect]
     Active Substance: SELEXIPAG
     Dosage: 800 MCG, BID
     Route: 048

REACTIONS (18)
  - Pain in extremity [Unknown]
  - Asthenia [Recovering/Resolving]
  - Insomnia [Unknown]
  - Nausea [Unknown]
  - Headache [Unknown]
  - Abdominal discomfort [Unknown]
  - Myalgia [Unknown]
  - Migraine [Unknown]
  - Pain in jaw [Unknown]
  - Feeling abnormal [Unknown]
  - Neck pain [Unknown]
  - Disability [Unknown]
  - Hyperacusis [Unknown]
  - Quality of life decreased [Unknown]
  - Pain [Not Recovered/Not Resolved]
  - Musculoskeletal pain [Unknown]
  - Photophobia [Unknown]
  - Back pain [Unknown]
